FAERS Safety Report 6395661-4 (Version None)
Quarter: 2009Q4

REPORT INFORMATION
  Report Type: 
  Country: None (occurrence: None)
  Receive Date: 20091009
  Receipt Date: 20091001
  Transmission Date: 20100525
  Serious: Yes (Death, Life-Threatening, Hospitalization, Other)
  Sender: FDA-Public Use
  Company Number: ZA-AVENTIS-200921142GDDC

PATIENT
  Age: 70 Year
  Sex: Female

DRUGS (2)
  1. TAXOTERE [Suspect]
     Dosage: DOSE: 60 MG ON DAYS 1 AND 8
     Route: 042
     Dates: start: 20080325, end: 20080325
  2. BETANOID [Concomitant]
     Indication: PROPHYLAXIS
     Route: 042
     Dates: start: 20080325, end: 20080325

REACTIONS (7)
  - ADDISON'S DISEASE [None]
  - HAEMOPTYSIS [None]
  - MUCOSAL INFLAMMATION [None]
  - NEUTROPENIA [None]
  - PANCYTOPENIA [None]
  - SEPSIS [None]
  - THROMBOCYTOPENIA [None]
